FAERS Safety Report 14055194 (Version 1)
Quarter: 2017Q4

REPORT INFORMATION
  Report Type: Spontaneous
  Country: US (occurrence: US)
  Receive Date: 20171006
  Receipt Date: 20171006
  Transmission Date: 20180321
  Serious: Yes (Other)
  Sender: FDA-Public Use
  Company Number: None

PATIENT
  Age: 38 Year
  Sex: Female
  Weight: 60.75 kg

DRUGS (6)
  1. ESTRACE [Concomitant]
     Active Substance: ESTRADIOL
  2. MICONAZOLE 1 [Suspect]
     Active Substance: MICONAZOLE NITRATE
     Indication: VULVOVAGINAL MYCOTIC INFECTION
     Dosage: QUANTITY:1 SUPPOSITORY(IES);OTHER FREQUENCY:ONE TIME;?
     Route: 067
     Dates: start: 20171002, end: 20171002
  3. CLOBETASOL [Concomitant]
     Active Substance: CLOBETASOL
  4. IBUPROPHEN [Concomitant]
     Active Substance: IBUPROFEN
  5. ZANTAC [Concomitant]
     Active Substance: RANITIDINE HYDROCHLORIDE
  6. ZYRTEC [Concomitant]
     Active Substance: CETIRIZINE HYDROCHLORIDE

REACTIONS (3)
  - Gait disturbance [None]
  - Vulvovaginal burning sensation [None]
  - Vulvovaginal swelling [None]

NARRATIVE: CASE EVENT DATE: 20171002
